FAERS Safety Report 15764004 (Version 1)
Quarter: 2018Q4

REPORT INFORMATION
  Report Type: Report from Study
  Country: CN (occurrence: CN)
  Receive Date: 20181227
  Receipt Date: 20181227
  Transmission Date: 20190205
  Serious: Yes (Other)
  Sender: FDA-Public Use
  Company Number: CN-ROCHE-2233021

PATIENT

DRUGS (2)
  1. CISPLATIN. [Suspect]
     Active Substance: CISPLATIN
     Indication: GASTRIC CANCER
     Dosage: IN 250ML OF 0.9% SODIUM CHLORIDE, D1 - 3
     Route: 041
  2. CAPECITABINE. [Suspect]
     Active Substance: CAPECITABINE
     Indication: GASTRIC CANCER
     Dosage: D1 ~ 14
     Route: 048

REACTIONS (3)
  - Bone marrow failure [Recovering/Resolving]
  - Functional gastrointestinal disorder [Unknown]
  - White blood cell count decreased [Recovering/Resolving]
